FAERS Safety Report 5148211-4 (Version None)
Quarter: 2006Q4

REPORT INFORMATION
  Report Type: 
  Country: None (occurrence: None)
  Receive Date: 20060918
  Receipt Date: 20060206
  Transmission Date: 20070319
  Serious: Yes (Other)
  Sender: FDA-Public Use
  Company Number: US-JNJFOC-20060202080

PATIENT
  Age: 17 Year
  Sex: Female

DRUGS (1)
  1. TOPAMAX [Suspect]
     Indication: MIGRAINE
     Dosage: 25 MG, 2 IN 1 DAY, ORAL
     Route: 048
     Dates: start: 20050801

REACTIONS (2)
  - ALOPECIA [None]
  - WEIGHT DECREASED [None]
